FAERS Safety Report 4572050-6 (Version None)
Quarter: 2005Q1

REPORT INFORMATION
  Report Type: 
  Country: None (occurrence: None)
  Receive Date: 20050202
  Receipt Date: 20050120
  Transmission Date: 20050727
  Serious: Yes (Disabling, Other)
  Sender: FDA-Public Use
  Company Number: 2005016867

PATIENT
  Sex: Female
  Weight: 90.7194 kg

DRUGS (8)
  1. ZOLOFT [Suspect]
     Indication: DEPRESSION
     Dosage: 1 IN 1 D, ORAL
     Route: 048
     Dates: start: 20000101
  2. NADOLOL [Concomitant]
  3. DIGOXIN [Concomitant]
  4. TOCOPHEROL (TOCOPHEROL) [Concomitant]
  5. EVENING PRIMROSE OIL (EVENING PRIMPOSE OIL) [Concomitant]
  6. TRAMADOL HCL [Concomitant]
  7. CYCLOBENZAPRINE HYDROCHLORIDE [Concomitant]
  8. DIPHENHYDRAMINE HCL [Concomitant]

REACTIONS (1)
  - VASCULAR ENCEPHALOPATHY [None]
